FAERS Safety Report 8583624-X (Version None)
Quarter: 2012Q3

REPORT INFORMATION
  Report Type: 
  Country: None (occurrence: None)
  Receive Date: 20120809
  Receipt Date: 20120614
  Transmission Date: 20120928
  Serious: Yes (Hospitalization)
  Sender: FDA-Public Use
  Company Number: GB-009507513-1208GBR001748

PATIENT

DRUGS (2)
  1. TELMISARTAN [Concomitant]
     Indication: HYPERTENSION
     Dosage: 12.5 MG, QD
     Route: 048
     Dates: start: 20111223, end: 20120216
  2. MK-0954A [Suspect]
     Dosage: UNK
     Route: 048

REACTIONS (1)
  - NEPHROLITHIASIS [None]
